FAERS Safety Report 5059645-0 (Version None)
Quarter: 2006Q3

REPORT INFORMATION
  Report Type: 
  Country: None (occurrence: None)
  Receive Date: 20060718
  Receipt Date: 20060630
  Transmission Date: 20061208
  Serious: Yes (Hospitalization)
  Sender: FDA-Public Use
  Company Number: US200607000360

PATIENT
  Age: 57 Year
  Sex: Male
  Weight: 77.6 kg

DRUGS (4)
  1. TERIPARATIDE (TERIPARATIDE)PEN, DISPOSABLE [Suspect]
     Indication: OSTEOPOROSIS
     Dosage: 20 MEQ DAILY (1/D) SUBCUTANEOUS
     Route: 058
     Dates: start: 20060210
  2. CALCIUM GLUCONATE [Concomitant]
  3. ROCALTROL [Concomitant]
  4. FORTEO [Concomitant]

REACTIONS (16)
  - ANAEMIA [None]
  - ANION GAP DECREASED [None]
  - ASPARTATE AMINOTRANSFERASE INCREASED [None]
  - ASTHENIA [None]
  - BLOOD ALBUMIN DECREASED [None]
  - BLOOD ALKALINE PHOSPHATASE INCREASED [None]
  - BLOOD BILIRUBIN INCREASED [None]
  - DEPRESSION [None]
  - HAEMATURIA [None]
  - HYPERCALCAEMIA [None]
  - HYPOKALAEMIA [None]
  - HYPOMAGNESAEMIA [None]
  - MUSCULOSKELETAL DISCOMFORT [None]
  - PCO2 INCREASED [None]
  - PROTEIN TOTAL INCREASED [None]
  - THROMBOCYTOPENIA [None]
